FAERS Safety Report 18454408 (Version 3)
Quarter: 2020Q4

REPORT INFORMATION
  Report Type: Spontaneous
  Country: GR (occurrence: GR)
  Receive Date: 20201102
  Receipt Date: 20201118
  Transmission Date: 20210114
  Serious: Yes (Disabling, Other)
  Sender: FDA-Public Use
  Company Number: GR-OTSUKA-2020_026792

PATIENT
  Age: 36 Year
  Sex: Male

DRUGS (3)
  1. REMERON [Suspect]
     Active Substance: MIRTAZAPINE
     Indication: SLEEP DISORDER
     Dosage: UNK (1/2 TABLET AT NIGHT)
     Route: 048
  2. ABILIFY [Suspect]
     Active Substance: ARIPIPRAZOLE
     Indication: SCHIZOPHRENIA
     Dosage: UNK
     Route: 065
  3. MINITRAN [Suspect]
     Active Substance: NITROGLYCERIN
     Indication: SCHIZOPHRENIA
     Dosage: 3 DF, QD (EVERY MORNING, AFTERNOON AND IN THE EVENING)
     Route: 065

REACTIONS (4)
  - Apnoea [Unknown]
  - Suicidal ideation [Unknown]
  - Tachycardia [Unknown]
  - Homicidal ideation [Unknown]

NARRATIVE: CASE EVENT DATE: 202010
